FAERS Safety Report 15360572 (Version 5)
Quarter: 2019Q2

REPORT INFORMATION
  Report Type: Report from Study
  Country: US (occurrence: US)
  Receive Date: 20180907
  Receipt Date: 20190411
  Transmission Date: 20190711
  Serious: Yes (Life-Threatening, Hospitalization, Other)
  Sender: FDA-Public Use
  Company Number: US-ROCHE-2179751

PATIENT
  Sex: Female
  Weight: 81.27 kg

DRUGS (29)
  1. ALLOPURINOL. [Concomitant]
     Active Substance: ALLOPURINOL
  2. PREVNAR 13 [Concomitant]
     Active Substance: PNEUMOCOCCAL 13-VALENT CONJUGATE VACCINE
  3. ATEZOLIZUMAB. [Suspect]
     Active Substance: ATEZOLIZUMAB
     Indication: DIFFUSE LARGE B-CELL LYMPHOMA REFRACTORY
     Route: 042
     Dates: start: 20180802, end: 20180802
  4. CHLORHEXIDINE GLUCONATE. [Concomitant]
     Active Substance: CHLORHEXIDINE GLUCONATE
  5. CYANOCOBALAMIN. [Concomitant]
     Active Substance: CYANOCOBALAMIN
  6. LEVETIRACETAM. [Concomitant]
     Active Substance: LEVETIRACETAM
  7. SULFAMETHOXAZOLE/TRIMETHOPRIM [Concomitant]
     Active Substance: SULFAMETHOXAZOLE\TRIMETHOPRIM
  8. VANCOMYCIN [Concomitant]
     Active Substance: VANCOMYCIN
  9. GRANIX [Concomitant]
     Active Substance: TBO-FILGRASTIM
  10. CYCLOPHOSPHAMIDE. [Suspect]
     Active Substance: CYCLOPHOSPHAMIDE
     Indication: CHEMOTHERAPY
     Route: 042
     Dates: start: 20180727, end: 20180729
  11. LEVOTHYROXINE. [Concomitant]
     Active Substance: LEVOTHYROXINE
  12. MICONAZOLE. [Concomitant]
     Active Substance: MICONAZOLE
  13. FERROUS SULFATE. [Concomitant]
     Active Substance: FERROUS SULFATE
  14. MAGNESIUM OXIDE. [Concomitant]
     Active Substance: MAGNESIUM OXIDE
  15. AXICABTAGENE CILOLEUCEL [Suspect]
     Active Substance: AXICABTAGENE CILOLEUCEL
     Indication: DIFFUSE LARGE B-CELL LYMPHOMA REFRACTORY
     Route: 042
     Dates: start: 20180801, end: 20180801
  16. FLUDARABINE [Suspect]
     Active Substance: FLUDARABINE PHOSPHATE
     Indication: CHEMOTHERAPY
     Route: 042
     Dates: start: 20180727, end: 20180729
  17. CHOLECALCIFEROL [Concomitant]
     Active Substance: CHOLECALCIFEROL
  18. CLINDAMYCIN. [Concomitant]
     Active Substance: CLINDAMYCIN
  19. LORATADINE. [Concomitant]
     Active Substance: LORATADINE
  20. MICAFUNGIN. [Concomitant]
     Active Substance: MICAFUNGIN SODIUM
  21. VALCYTE [Concomitant]
     Active Substance: VALGANCICLOVIR HYDROCHLORIDE
  22. NEULASTA [Concomitant]
     Active Substance: PEGFILGRASTIM
  23. ATOVAQUONE. [Concomitant]
     Active Substance: ATOVAQUONE
  24. PLATELETS [Concomitant]
     Active Substance: HUMAN PLATELET, ALLOGENIC
  25. HYDROCORT (HYDROCORTISONE ACETATE) [Concomitant]
  26. VFEND [Concomitant]
     Active Substance: VORICONAZOLE
  27. ACYCLOVIR. [Concomitant]
     Active Substance: ACYCLOVIR
  28. CEFTAZIDIME. [Concomitant]
     Active Substance: CEFTAZIDIME
  29. LEVOPHED [Concomitant]
     Active Substance: NOREPINEPHRINE BITARTRATE

REACTIONS (14)
  - Thrombocytopenia [Not Recovered/Not Resolved]
  - Nausea [Recovered/Resolved]
  - Diarrhoea [Recovered/Resolved]
  - Swelling face [Not Recovered/Not Resolved]
  - Leukopenia [Not Recovered/Not Resolved]
  - Hypotension [Not Recovered/Not Resolved]
  - Cytokine release syndrome [Recovered/Resolved]
  - Hypokalaemia [Recovered/Resolved]
  - Neutropenia [Not Recovered/Not Resolved]
  - Haemophagocytic lymphohistiocytosis [Not Recovered/Not Resolved]
  - Pneumonitis [Not Recovered/Not Resolved]
  - Lymphopenia [Not Recovered/Not Resolved]
  - Hypoxia [Not Recovered/Not Resolved]
  - Vomiting [Recovered/Resolved]

NARRATIVE: CASE EVENT DATE: 20180802
